FAERS Safety Report 5502072-X (Version None)
Quarter: 2007Q4

REPORT INFORMATION
  Report Type: 
  Country: None (occurrence: None)
  Receive Date: 20071019
  Receipt Date: 20061027
  Transmission Date: 20080405
  Serious: Yes (Death)
  Sender: FDA-Public Use
  Company Number: PHEH2005US00713

PATIENT
  Age: 84 Year
  Sex: Female

DRUGS (1)
  1. ZOMETA [Suspect]
     Indication: METASTASES TO BONE
     Dosage: ^WAS ON ZOMETA FOR FOUR YEARS^

REACTIONS (2)
  - BLOOD CREATININE INCREASED [None]
  - BREAST CANCER METASTATIC [None]
